FAERS Safety Report 8362933-3 (Version None)
Quarter: 2012Q2

REPORT INFORMATION
  Report Type: 
  Country: None (occurrence: None)
  Receive Date: 20120514
  Receipt Date: 20120502
  Transmission Date: 20120825
  Serious: Yes (Other)
  Sender: FDA-Public Use
  Company Number: AUR-APL-2012-02149

PATIENT
  Age: 63 Year
  Sex: Female
  Weight: 76.19 kg

DRUGS (6)
  1. MOTRIN [Suspect]
     Indication: PAIN
     Dosage: (800 MG AS REQUIRED)
  2. THYROID THERAPY(THYROID THERAPY) [Suspect]
     Indication: THYROID DISORDER
  3. CYTOMEL [Concomitant]
  4. VENLAFAXINE [Suspect]
     Indication: DEPRESSION
     Dosage: (150 MG, 1 D),
     Route: 048
     Dates: start: 20120101
  5. VENLAFAXINE [Suspect]
     Indication: ANXIETY
     Dosage: (150 MG, 1 D),
     Route: 048
     Dates: start: 20120101
  6. ANTIDEPRESSANTS (ANTIDEPRE [Suspect]
     Indication: DEPRESSION

REACTIONS (6)
  - MAJOR DEPRESSION [None]
  - FATIGUE [None]
  - ANXIETY [None]
  - EMOTIONAL DISORDER [None]
  - DRUG INEFFECTIVE [None]
  - ACTIVITIES OF DAILY LIVING IMPAIRED [None]
